FAERS Safety Report 5228662-X (Version None)
Quarter: 2007Q1

REPORT INFORMATION
  Report Type: 
  Country: None (occurrence: None)
  Receive Date: 20070205
  Receipt Date: 20070202
  Transmission Date: 20070707
  Serious: Yes (Other)
  Sender: FDA-Public Use
  Company Number: BR-GLAXOSMITHKLINE-A0638179A

PATIENT
  Age: 19 Year
  Sex: Female

DRUGS (2)
  1. AEROLIN [Suspect]
     Dosage: 4MG PER DAY
     Route: 048
     Dates: start: 20060101, end: 20070128
  2. PROVERA [Suspect]
     Indication: MENSTRUATION DELAYED
     Route: 048
     Dates: start: 20070117, end: 20070128

REACTIONS (1)
  - ABORTION [None]
